FAERS Safety Report 9034127 (Version 1)
Quarter: 2013Q1

REPORT INFORMATION
  Report Type: Spontaneous
  Country: US (occurrence: US)
  Receive Date: 20130128
  Receipt Date: 20130128
  Transmission Date: 20140127
  Serious: Yes (Death)
  Sender: FDA-Public Use
  Company Number: US-AMGEN-USASP2012060653

PATIENT
  Age: 68 Year
  Sex: Male

DRUGS (1)
  1. PROCRIT [Suspect]
     Indication: PRODUCT USED FOR UNKNOWN INDICATION
     Dosage: 20000 UNIT, UNK

REACTIONS (1)
  - Death [Fatal]
